FAERS Safety Report 13935151 (Version 1)
Quarter: 2017Q3

REPORT INFORMATION
  Report Type: Spontaneous
  Country: US (occurrence: None)
  Receive Date: 20170901
  Receipt Date: 20170901
  Transmission Date: 20171127
  Serious: Yes (Hospitalization)
  Sender: FDA-Public Use
  Company Number: None

PATIENT
  Age: 74 Year
  Sex: Male
  Weight: 60 kg

DRUGS (1)
  1. MEXILETINE [Suspect]
     Active Substance: MEXILETINE
     Indication: VENTRICULAR TACHYCARDIA
     Route: 048
     Dates: start: 20150801, end: 20170609

REACTIONS (5)
  - Confusional state [None]
  - Toxicity to various agents [None]
  - Hallucination [None]
  - Dysarthria [None]
  - Vision blurred [None]

NARRATIVE: CASE EVENT DATE: 20170608
